FAERS Safety Report 9308646 (Version 1)
Quarter: 2013Q2

REPORT INFORMATION
  Report Type: Spontaneous
  Country: PL (occurrence: PL)
  Receive Date: 20130524
  Receipt Date: 20130524
  Transmission Date: 20140414
  Serious: Yes (Other)
  Sender: FDA-Public Use
  Company Number: PL-ASTRAZENECA-2013SE34664

PATIENT
  Age: 67 Year
  Sex: Male

DRUGS (4)
  1. ZOLADEX [Suspect]
     Indication: PROSTATE CANCER
     Route: 058
  2. FLUTAMIDE [Suspect]
     Indication: PROSTATE CANCER
     Dosage: 1 DF THREE TIMES A DAY, FOR TWO WEEKS
     Route: 065
  3. FLUTAMIDE [Suspect]
     Indication: PROSTATE CANCER
     Route: 065
  4. BONEFOS [Suspect]
     Route: 065

REACTIONS (5)
  - Metastases to bone [Unknown]
  - Urge incontinence [Unknown]
  - Bone pain [Unknown]
  - Prostatic specific antigen increased [Unknown]
  - Micturition urgency [Unknown]
